FAERS Safety Report 4685243-4 (Version None)
Quarter: 2005Q2

REPORT INFORMATION
  Report Type: 
  Country: None (occurrence: None)
  Receive Date: 20050608
  Receipt Date: 20050527
  Transmission Date: 20051028
  Serious: Yes (Other)
  Sender: FDA-Public Use
  Company Number: NL-JNJFOC-20050406712

PATIENT
  Sex: Male

DRUGS (5)
  1. REMICADE [Suspect]
     Indication: CROHN'S DISEASE
     Route: 042
  2. FOSAMAX [Suspect]
     Indication: DRUG USE FOR UNKNOWN INDICATION
     Route: 065
  3. ACTONEL [Suspect]
     Indication: UNEVALUABLE EVENT
     Route: 065
  4. IMURAN [Concomitant]
     Route: 065
  5. PREDNISON [Concomitant]
     Dosage: STOPPED IN SEP/OCT 2004
     Route: 065

REACTIONS (4)
  - EYE INFLAMMATION [None]
  - FUNGAL INFECTION [None]
  - SKIN INFECTION [None]
  - URINARY TRACT INFECTION [None]
